FAERS Safety Report 6989754-8 (Version None)
Quarter: 2010Q3

REPORT INFORMATION
  Report Type: 
  Country: None (occurrence: None)
  Receive Date: 20100916
  Receipt Date: 20100216
  Transmission Date: 20110219
  Serious: Yes (Other)
  Sender: FDA-Public Use
  Company Number: PR-PFIZER INC-2010020891

PATIENT
  Sex: Female

DRUGS (3)
  1. LYRICA [Suspect]
     Dosage: 400 MG, UNK
  2. ULTRACET [Suspect]
     Dosage: UNK
  3. MILNACIPRAN [Suspect]
     Dosage: UNK

REACTIONS (1)
  - POLYCHONDRITIS [None]
